FAERS Safety Report 9995957 (Version 1)
Quarter: 2014Q1

REPORT INFORMATION
  Report Type: Spontaneous
  Country: US (occurrence: None)
  Receive Date: 20140310
  Receipt Date: 20140310
  Transmission Date: 20141002
  Serious: Yes (Hospitalization)
  Sender: FDA-Public Use
  Company Number: None

PATIENT
  Age: 79 Year
  Sex: Male
  Weight: 99.1 kg

DRUGS (2)
  1. WARFARIN [Suspect]
     Indication: ATRIAL FIBRILLATION
     Route: 048
     Dates: start: 19980302
  2. WARFARIN [Suspect]
     Indication: CEREBROVASCULAR ACCIDENT
     Route: 048
     Dates: start: 19980302

REACTIONS (6)
  - International normalised ratio increased [None]
  - Pallor [None]
  - Blood pressure decreased [None]
  - Gastric haemorrhage [None]
  - Syncope [None]
  - Unresponsive to stimuli [None]
